FAERS Safety Report 4722588-3 (Version None)
Quarter: 2005Q3

REPORT INFORMATION
  Report Type: 
  Country: None (occurrence: None)
  Receive Date: 20050719
  Receipt Date: 20040928
  Transmission Date: 20060218
  Serious: Yes (Hospitalization)
  Sender: FDA-Public Use
  Company Number: 2004236358US

PATIENT
  Age: 48 Year
  Sex: Female
  Weight: 104.3 kg

DRUGS (11)
  1. CELEBREX [Suspect]
     Dosage: 200 MG, BID,
     Dates: start: 20001201, end: 20010402
  2. NOVOLIN 70/30 [Concomitant]
  3. LORTAB [Concomitant]
  4. GLUCOPHAGE [Concomitant]
  5. REGLAN [Concomitant]
  6. PROTONIX [Concomitant]
  7. ELAVIL [Concomitant]
  8. SEREVENT [Concomitant]
  9. VENTOLIN [Concomitant]
  10. FLOVENT [Concomitant]
  11. MONTELUKAST (MONTELUKAST) [Concomitant]

REACTIONS (1)
  - CEREBROVASCULAR ACCIDENT [None]
